FAERS Safety Report 20148041 (Version 1)
Quarter: 2021Q4

REPORT INFORMATION
  Report Type: Spontaneous
  Country: US (occurrence: US)
  Receive Date: 20211205
  Receipt Date: 20211205
  Transmission Date: 20220303
  Serious: Yes (Other)
  Sender: FDA-Public Use
  Company Number: US-SCALL-2021-US-018795

PATIENT
  Age: 74 Year
  Sex: Male

DRUGS (2)
  1. CARVEDILOL [Suspect]
     Active Substance: CARVEDILOL
     Indication: Product used for unknown indication
     Route: 048
  2. COREG CR [Suspect]
     Active Substance: CARVEDILOL PHOSPHATE
     Indication: Cardiac failure
     Route: 048
     Dates: start: 19970101

REACTIONS (3)
  - Cough [Unknown]
  - Dyspnoea [Unknown]
  - Bronchospasm [Unknown]
